FAERS Safety Report 13343482 (Version 1)
Quarter: 2017Q1

REPORT INFORMATION
  Report Type: Spontaneous
  Country: CA (occurrence: CA)
  Receive Date: 20170316
  Receipt Date: 20170316
  Transmission Date: 20170428
  Serious: Yes (Death, Hospitalization)
  Sender: FDA-Public Use
  Company Number: CA-SA-2017SA040651

PATIENT
  Age: 36 Year
  Sex: Female
  Weight: 58 kg

DRUGS (22)
  1. EPOPROSTENOL SODIUM. [Suspect]
     Active Substance: EPOPROSTENOL SODIUM
     Indication: PULMONARY ARTERIAL HYPERTENSION
     Dosage: 1 EVERY 1 MINUTE(S)
     Route: 042
  2. ATIVAN [Concomitant]
     Active Substance: LORAZEPAM
     Route: 065
  3. LOVENOX [Suspect]
     Active Substance: ENOXAPARIN SODIUM
     Indication: DEEP VEIN THROMBOSIS
     Dosage: DOSGAE FORM: SOLUTION SUBCUTANEOUS
     Route: 058
  4. ACETAMINOPHEN. [Concomitant]
     Active Substance: ACETAMINOPHEN
     Route: 065
  5. LASIX [Concomitant]
     Active Substance: FUROSEMIDE
     Route: 042
  6. LOPERAMIDE [Concomitant]
     Active Substance: LOPERAMIDE
     Route: 048
  7. GRAVOL [Concomitant]
     Active Substance: DIMENHYDRINATE
     Route: 065
  8. LASIX [Concomitant]
     Active Substance: FUROSEMIDE
     Route: 042
  9. MAGNESIUM SULFATE. [Concomitant]
     Active Substance: MAGNESIUM SULFATE
     Route: 042
  10. OXYGEN. [Concomitant]
     Active Substance: OXYGEN
     Indication: PULMONARY ARTERIAL HYPERTENSION
     Dosage: ROUTE: INTRA-NASAL
  11. OPSUMIT [Suspect]
     Active Substance: MACITENTAN
     Indication: PULMONARY ARTERIAL HYPERTENSION
     Route: 048
  12. FORMOTEROL [Concomitant]
     Active Substance: FORMOTEROL
     Dosage: ROUTE: INHALATION
  13. LASIX [Concomitant]
     Active Substance: FUROSEMIDE
     Route: 042
  14. MAXERAN [Concomitant]
     Active Substance: METOCLOPRAMIDE HYDROCHLORIDE
     Route: 065
  15. OXYGEN. [Concomitant]
     Active Substance: OXYGEN
     Indication: PULMONARY ARTERIAL HYPERTENSION
     Dosage: ROUTE: INTRA-NASAL??DOSAGE FORM : GAS FOR?INHALATION
  16. ADCIRCA [Concomitant]
     Active Substance: TADALAFIL
     Route: 065
  17. ALESSE 28 [Concomitant]
     Active Substance: ETHINYL ESTRADIOL\LEVONORGESTREL
     Route: 065
  18. MOMETASONE FUROATE. [Concomitant]
     Active Substance: MOMETASONE FUROATE
     Dosage: ROUTE:INHALATION
  19. EPOPROSTENOL SODIUM. [Suspect]
     Active Substance: EPOPROSTENOL SODIUM
     Indication: PULMONARY ARTERIAL HYPERTENSION
     Dosage: 1 EVERY 1 MINUTE(S)
     Route: 042
  20. FLONASE [Concomitant]
     Active Substance: FLUTICASONE PROPIONATE
     Route: 065
  21. LASIX [Concomitant]
     Active Substance: FUROSEMIDE
     Route: 042
  22. LASIX [Concomitant]
     Active Substance: FUROSEMIDE
     Route: 042

REACTIONS (19)
  - Cardiac arrest [Fatal]
  - Cough [Unknown]
  - Diarrhoea [Unknown]
  - Dyspnoea [Unknown]
  - Pulmonary arterial hypertension [Unknown]
  - Hypomagnesaemia [Unknown]
  - Tachycardia [Unknown]
  - Venous pressure jugular increased [Unknown]
  - Pulmonary haemorrhage [Unknown]
  - Liver function test increased [Unknown]
  - Anxiety [Unknown]
  - Disease progression [Unknown]
  - Oxygen saturation decreased [Unknown]
  - Deep vein thrombosis [Unknown]
  - Acute kidney injury [Unknown]
  - Right ventricular failure [Unknown]
  - Transplant evaluation [Unknown]
  - Oedema peripheral [Unknown]
  - Haemoptysis [Unknown]
